FAERS Safety Report 4688059-8 (Version None)
Quarter: 2005Q2

REPORT INFORMATION
  Report Type: 
  Country: None (occurrence: None)
  Receive Date: 20050610
  Receipt Date: 20050531
  Transmission Date: 20051028
  Serious: Yes (Disabling)
  Sender: FDA-Public Use
  Company Number: FI-ROCHE-406249

PATIENT
  Age: 16 Year
  Sex: Male

DRUGS (1)
  1. ROACCUTAN [Suspect]
     Route: 048
     Dates: start: 20041112, end: 20050510

REACTIONS (2)
  - SOCIAL AVOIDANT BEHAVIOUR [None]
  - SUICIDAL IDEATION [None]
